FAERS Safety Report 9414268 (Version 2)
Quarter: 2013Q3

REPORT INFORMATION
  Report Type: Spontaneous
  Country: FR (occurrence: FR)
  Receive Date: 20130723
  Receipt Date: 20130902
  Transmission Date: 20140515
  Serious: Yes (Hospitalization)
  Sender: FDA-Public Use
  Company Number: FR-AMGEN-FRASP2013051027

PATIENT
  Age: 88 Year
  Sex: Male
  Weight: 115 kg

DRUGS (4)
  1. XGEVA [Suspect]
     Indication: METASTASES TO BONE
     Dosage: UNK
     Route: 058
     Dates: start: 20130621
  2. ANDROCUR [Suspect]
     Indication: PRODUCT USED FOR UNKNOWN INDICATION
     Dosage: UNK
     Route: 048
     Dates: start: 20130722
  3. FUROSEMIDE [Concomitant]
     Dosage: 20 MG, QD, PROGRESSIVELY INCREASED TO 160MG/DAY
     Route: 048
  4. DIGOXIN [Concomitant]
     Dosage: 0.125 MG, QD

REACTIONS (1)
  - Nephritic syndrome [Not Recovered/Not Resolved]
